FAERS Safety Report 18798445 (Version 1)
Quarter: 2021Q1

REPORT INFORMATION
  Report Type: Spontaneous
  Country: US (occurrence: US)
  Receive Date: 20210127
  Receipt Date: 20210127
  Transmission Date: 20210419
  Serious: No
  Sender: FDA-Public Use
  Company Number: None

PATIENT
  Age: 32 Year
  Sex: Female

DRUGS (1)
  1. COSENTYX [Suspect]
     Active Substance: SECUKINUMAB
     Indication: PSORIASIS
     Dosage: INJECT 300MG (2 PENS) SUBCUTANEOUSLY AT  WEEK   0,1,2,3 \T\ 4  AS DIRECTED
     Route: 058

REACTIONS (4)
  - Post procedural complication [None]
  - Influenza [None]
  - Pruritus [None]
  - Infection [None]
